FAERS Safety Report 25011757 (Version 1)
Quarter: 2025Q1

REPORT INFORMATION
  Report Type: Spontaneous
  Country: CN (occurrence: CN)
  Receive Date: 20250226
  Receipt Date: 20250226
  Transmission Date: 20250408
  Serious: Yes (Life-Threatening)
  Sender: NOVARTIS
  Company Number: CN-002147023-NVSC2025CN032161

PATIENT
  Age: 61 Year
  Sex: Male
  Weight: 40 kg

DRUGS (6)
  1. OXCARBAZEPINE [Suspect]
     Active Substance: OXCARBAZEPINE
     Indication: Stress ulcer
     Dosage: 0.15 G, BID (NASAL FEEDING)
     Route: 045
     Dates: start: 20241216, end: 20241216
  2. OXCARBAZEPINE [Suspect]
     Active Substance: OXCARBAZEPINE
     Indication: Epilepsy
  3. ESOMEPRAZOLE SODIUM [Suspect]
     Active Substance: ESOMEPRAZOLE SODIUM
     Indication: Stress ulcer
     Dosage: 40 MG, BID (Q12H)
     Route: 042
     Dates: start: 20241216, end: 20241227
  4. ESOMEPRAZOLE SODIUM [Suspect]
     Active Substance: ESOMEPRAZOLE SODIUM
     Indication: End stage renal disease
     Dosage: 40 MG, BID
     Route: 042
     Dates: start: 20250104, end: 20250116
  5. ESOMEPRAZOLE MAGNESIUM [Concomitant]
     Active Substance: ESOMEPRAZOLE MAGNESIUM
     Indication: End stage renal disease
     Dosage: 20 MG, QD
     Route: 045
     Dates: start: 20241227, end: 20250102
  6. ESOMEPRAZOLE MAGNESIUM [Concomitant]
     Active Substance: ESOMEPRAZOLE MAGNESIUM
     Dosage: 20 MG, BID (NASAL FEEDING)
     Route: 045
     Dates: start: 20250102, end: 20250104

REACTIONS (12)
  - Drug eruption [Recovering/Resolving]
  - Skin lesion [Recovering/Resolving]
  - Epidermolysis [Recovering/Resolving]
  - Skin exfoliation [Recovering/Resolving]
  - Effusion [Recovering/Resolving]
  - Dermatitis exfoliative [Recovering/Resolving]
  - Erythema [Recovering/Resolving]
  - Blister [Recovering/Resolving]
  - Skin injury [Recovering/Resolving]
  - Infection [Recovering/Resolving]
  - White blood cell count decreased [Recovering/Resolving]
  - Platelet count decreased [Recovering/Resolving]

NARRATIVE: CASE EVENT DATE: 20250112
